FAERS Safety Report 5061453-1 (Version None)
Quarter: 2006Q3

REPORT INFORMATION
  Report Type: 
  Country: None (occurrence: None)
  Receive Date: 20060719
  Receipt Date: 20060719
  Transmission Date: 20061208
  Serious: Yes (Hospitalization)
  Sender: FDA-Public Use
  Company Number: None

PATIENT
  Age: 72 Year
  Sex: Male
  Weight: 55.7924 kg

DRUGS (11)
  1. WARFARIN SODIUM [Suspect]
     Indication: CEREBROVASCULAR ACCIDENT
     Dosage: 3 MG DAILY
  2. ATENOLOL [Concomitant]
  3. ENALAPRIL MALEATE [Concomitant]
  4. ISOSORBIDE MONONITRATE [Concomitant]
  5. LOVASTATIN [Concomitant]
  6. ZANTAC [Concomitant]
  7. LEXAPRO [Concomitant]
  8. COUMADIN [Concomitant]
  9. MOM [Concomitant]
  10. BISCODYL [Concomitant]
  11. ALBUTEROL SPIROS [Concomitant]

REACTIONS (3)
  - FAECES DISCOLOURED [None]
  - GASTROINTESTINAL HAEMORRHAGE [None]
  - HAEMATEMESIS [None]
